FAERS Safety Report 5790255-3 (Version None)
Quarter: 2008Q2

REPORT INFORMATION
  Report Type: 
  Country: None (occurrence: None)
  Receive Date: 20080626
  Receipt Date: 20080312
  Transmission Date: 20081010
  Serious: No
  Sender: FDA-Public Use
  Company Number: A0707088A

PATIENT
  Sex: Female

DRUGS (2)
  1. ALLI [Suspect]
     Route: 048
  2. ANTIDEPRESSANT [Suspect]

REACTIONS (11)
  - COUGH [None]
  - DEPRESSION [None]
  - DRUG INTERACTION [None]
  - IMMUNE SYSTEM DISORDER [None]
  - INFLUENZA [None]
  - MALAISE [None]
  - PYREXIA [None]
  - RESPIRATORY TRACT INFECTION [None]
  - STARVATION [None]
  - THERAPEUTIC RESPONSE UNEXPECTED [None]
  - WEIGHT INCREASED [None]
